FAERS Safety Report 5480112-4 (Version None)
Quarter: 2007Q4

REPORT INFORMATION
  Report Type: 
  Country: None (occurrence: None)
  Receive Date: 20071009
  Receipt Date: 20071001
  Transmission Date: 20080405
  Serious: Yes (Hospitalization)
  Sender: FDA-Public Use
  Company Number: PHBS2007NL16404

PATIENT
  Sex: Female

DRUGS (3)
  1. DIOVAN [Suspect]
     Indication: HYPERTENSION
     Dosage: 1 TABLET/DAY
     Route: 048
     Dates: start: 20070216
  2. BISOPROLOL FUMARATE [Concomitant]
     Dosage: 2.5 MG, QD
     Route: 048
     Dates: start: 20061207
  3. CARBASALATE CALCIUM [Concomitant]
     Dosage: 100 MG, QD
     Route: 048
     Dates: start: 20061207

REACTIONS (2)
  - CARDIAC OPERATION [None]
  - OEDEMA [None]
